FAERS Safety Report 4778264-4 (Version None)
Quarter: 2005Q3

REPORT INFORMATION
  Report Type: 
  Country: None (occurrence: None)
  Receive Date: 20050926
  Receipt Date: 20040830
  Transmission Date: 20060218
  Serious: No
  Sender: FDA-Public Use
  Company Number: US-BRISTOL-MYERS SQUIBB COMPANY-12686580

PATIENT
  Age: 52 Year
  Sex: Female
  Weight: 73 kg

DRUGS (4)
  1. STADOL [Suspect]
     Indication: HEADACHE
     Route: 045
     Dates: start: 20030501
  2. BUTORPHANOL TARTRATE [Suspect]
     Indication: HEADACHE
     Route: 045
     Dates: start: 20030501, end: 20030601
  3. DARVOCET [Concomitant]
  4. SYNTHROID [Concomitant]

REACTIONS (1)
  - ANXIETY [None]
